FAERS Safety Report 4804260-4 (Version None)
Quarter: 2005Q4

REPORT INFORMATION
  Report Type: 
  Country: None (occurrence: None)
  Receive Date: 20051020
  Receipt Date: 20051013
  Transmission Date: 20060501
  Serious: Yes (Death)
  Sender: FDA-Public Use
  Company Number: US-JNJFOC-20051003076

PATIENT
  Sex: Male
  Weight: 58.97 kg

DRUGS (5)
  1. FENTANYL [Suspect]
     Route: 062
     Dates: start: 20050908
  2. FENTANYL [Suspect]
     Indication: CANCER PAIN
     Route: 062
     Dates: start: 20050908
  3. METHADONE [Concomitant]
     Indication: CANCER PAIN
  4. MORPHINE [Concomitant]
     Indication: CANCER PAIN
  5. LORAZEPAM [Concomitant]

REACTIONS (1)
  - PROSTATE CANCER [None]
